FAERS Safety Report 10842454 (Version 21)
Quarter: 2018Q3

REPORT INFORMATION
  Report Type: Spontaneous
  Country: BR (occurrence: BR)
  Receive Date: 20150220
  Receipt Date: 20180816
  Transmission Date: 20181010
  Serious: Yes (Hospitalization, Other)
  Sender: FDA-Public Use
  Company Number: BR-AMGEN-BRASP2015015520

PATIENT
  Age: 51 Year
  Sex: Female
  Weight: 72 kg

DRUGS (43)
  1. ENBREL [Interacting]
     Active Substance: ETANERCEPT
     Indication: ARTHRITIS
     Dosage: 50 MG, QWK
     Route: 058
  2. CARBAMAZEPINE. [Interacting]
     Active Substance: CARBAMAZEPINE
     Indication: EMOTIONAL DISORDER
     Dosage: UNK
     Route: 065
  3. CLONAZEPAM. [Interacting]
     Active Substance: CLONAZEPAM
     Indication: EMOTIONAL DISORDER
     Dosage: HALF TABLET (UNSPECIFIED DOSE), UNSPECIFIED FREQUENCY
     Route: 048
  4. CLONAZEPAM. [Interacting]
     Active Substance: CLONAZEPAM
     Dosage: 24 MG, QD
     Route: 065
  5. CYCLOBENZAPRINE. [Concomitant]
     Active Substance: CYCLOBENZAPRINE
     Dosage: UNK
  6. ENBREL [Interacting]
     Active Substance: ETANERCEPT
     Dosage: 50 MG, WEEKLY
     Route: 065
  7. AMITRIPTYLINE [Interacting]
     Active Substance: AMITRIPTYLINE
     Indication: PAIN
     Dosage: 2 TABLETS (40 MG), AT NIGHT
     Route: 065
  8. CLONAZEPAM. [Interacting]
     Active Substance: CLONAZEPAM
     Indication: ANXIETY
     Dosage: 2 MG, ONCE DAILY, AS NEEDED
     Route: 048
     Dates: start: 2012
  9. TRAMAL [Concomitant]
     Active Substance: TRAMADOL
     Indication: PAIN
     Dosage: SHE TAKES EVERY 15 DAYS WHEN COULD NOT WALK NEITHER MOVE HERSELF
     Route: 048
  10. PROFENID [Concomitant]
     Active Substance: KETOPROFEN
     Indication: PAIN
     Dosage: UNK
  11. TRAMADOL. [Concomitant]
     Active Substance: TRAMADOL
     Indication: PAIN
     Dosage: UNK
  12. PREDNISONE. [Suspect]
     Active Substance: PREDNISONE
     Indication: PAIN
     Dosage: 1 TABLET OF STRENGTH 20 MG, ONCE WEEKLY (AS NEEDED)
     Route: 065
     Dates: start: 2015
  13. CARBAMAZEPINE. [Interacting]
     Active Substance: CARBAMAZEPINE
     Indication: DEPRESSION
     Dosage: 200 MG, QD
     Route: 065
  14. OMEPRAZOLE. [Concomitant]
     Active Substance: OMEPRAZOLE
     Dosage: 1 TABLET (UNSPECIFIED DOSE), AT NIGHT
  15. LEFLUNOMIDE. [Concomitant]
     Active Substance: LEFLUNOMIDE
     Dosage: ONE TABLET (20 MG), DAILY
     Dates: start: 2012
  16. CYCLOBENZAPRINE. [Concomitant]
     Active Substance: CYCLOBENZAPRINE
     Dosage: UNK
  17. ENBREL [Interacting]
     Active Substance: ETANERCEPT
     Dosage: 50 MG, WEEKLY
     Route: 065
  18. PREDNISONE. [Suspect]
     Active Substance: PREDNISONE
     Dosage: 5 MG, DAILY
     Route: 065
  19. PREDNISONE. [Suspect]
     Active Substance: PREDNISONE
     Dosage: 10 MG PER DAY
     Route: 065
  20. AMITRIPTYLINE [Interacting]
     Active Substance: AMITRIPTYLINE
     Indication: SLEEP DISORDER
     Dosage: 25 MG, 1X/DAY (AT NIGHT)
     Route: 065
     Dates: start: 2012
  21. AMITRIPTYLINE [Interacting]
     Active Substance: AMITRIPTYLINE
     Dosage: 2 TABLETS (40 MG), AT NIGHT
     Route: 065
  22. FOLIC ACID. [Concomitant]
     Active Substance: FOLIC ACID
     Dosage: 1 TABLET WEEKLY
     Dates: start: 2013
  23. TRAMAL [Concomitant]
     Active Substance: TRAMADOL
     Indication: GAIT INABILITY
     Dosage: SHE TAKES EVERY 15 DAYS WHEN COULD NOT WALK NEITHER MOVE HERSELF
     Route: 048
  24. TRAMADOL. [Concomitant]
     Active Substance: TRAMADOL
     Dosage: 50 MG, UNK
     Dates: start: 2016
  25. ENBREL [Interacting]
     Active Substance: ETANERCEPT
     Indication: OSTEOARTHRITIS
     Dosage: 50 UNK, UNK
     Route: 065
  26. AMITRIPTYLINE [Interacting]
     Active Substance: AMITRIPTYLINE
     Dosage: 25 MG, 2 PER DAY (50 MG, DAILY)
     Route: 065
  27. CLONAZEPAM. [Interacting]
     Active Substance: CLONAZEPAM
     Indication: ANXIETY
     Dosage: HALF TABLET (UNSPECIFIED DOSE), UNSPECIFIED FREQUENCY
     Route: 048
  28. OMEPRAZOLE. [Concomitant]
     Active Substance: OMEPRAZOLE
     Indication: GASTRIC DISORDER
     Dosage: ONE TABLET (20 MG), DAILY IN THE MORNING
     Dates: start: 2014
  29. PROFENID [Concomitant]
     Active Substance: KETOPROFEN
     Dosage: 50 MG, AS NEEDED
     Dates: start: 2016
  30. ENBREL [Suspect]
     Active Substance: ETANERCEPT
     Indication: RHEUMATOID ARTHRITIS
     Dosage: 50 MG, WEEKLY
     Route: 058
     Dates: start: 201502
  31. CARBAMAZEPINE. [Interacting]
     Active Substance: CARBAMAZEPINE
     Dosage: 200 MG, QD
     Route: 065
  32. CLONAZEPAM. [Interacting]
     Active Substance: CLONAZEPAM
     Indication: SLEEP DISORDER THERAPY
     Dosage: HALF TABLET (UNSPECIFIED DOSE), UNSPECIFIED FREQUENCY
     Route: 048
  33. CLONAZEPAM. [Interacting]
     Active Substance: CLONAZEPAM
     Indication: STRESS
     Dosage: 24 MG, QD
     Route: 065
  34. SERTRALINE [Concomitant]
     Active Substance: SERTRALINE HYDROCHLORIDE
     Indication: DEPRESSION
     Dosage: 2 X 25 MG TABLETS
     Dates: start: 2014
  35. SERTRALINE [Concomitant]
     Active Substance: SERTRALINE HYDROCHLORIDE
     Dosage: 20 MG, 1X/DAY (IN THE MORNING)
  36. VOLTAREN [Suspect]
     Active Substance: DICLOFENAC SODIUM
     Indication: PAIN
     Dosage: 50 MG, DAILY
     Route: 065
     Dates: start: 2015
  37. VOLTAREN [Suspect]
     Active Substance: DICLOFENAC SODIUM
     Dosage: 50 MG, QD
     Route: 065
  38. SIMVASTATIN. [Concomitant]
     Active Substance: SIMVASTATIN
     Indication: BLOOD CHOLESTEROL ABNORMAL
     Dosage: ONE TABLET (20 MG), DAILY (AT NIGHT)
     Dates: start: 2014
  39. OMEPRAZOLE. [Concomitant]
     Active Substance: OMEPRAZOLE
     Dosage: 1 TABLET (UNSPECIFIED DOSE), AT NIGHT
  40. PREDNISONE. [Suspect]
     Active Substance: PREDNISONE
     Dosage: 5 MG, DAILY
     Route: 065
  41. CARBAMAZEPINE. [Interacting]
     Active Substance: CARBAMAZEPINE
     Indication: SLEEP DISORDER
     Dosage: HALF TABLET (100 MG), UNSPECIFIED FREQUENCY
     Route: 065
     Dates: start: 2014
  42. AMITRIPTYLINE [Interacting]
     Active Substance: AMITRIPTYLINE
     Indication: EMOTIONAL DISORDER
     Dosage: 25 MG, 2 PER DAY (50 MG, DAILY)
     Route: 065
  43. SERTRALINE [Concomitant]
     Active Substance: SERTRALINE HYDROCHLORIDE
     Dosage: 20 MG, 1X/DAY (IN THE MORNING)

REACTIONS (53)
  - Sluggishness [Unknown]
  - Feeling cold [Recovered/Resolved]
  - Infection [Not Recovered/Not Resolved]
  - Pneumonia [Recovered/Resolved]
  - Insomnia [Not Recovered/Not Resolved]
  - Hyperhidrosis [Recovered/Resolved]
  - Condition aggravated [Not Recovered/Not Resolved]
  - Drug dependence [Unknown]
  - Feeling hot [Recovered/Resolved]
  - Drug effect decreased [Unknown]
  - Asthenia [Not Recovered/Not Resolved]
  - Erythema [Recovered/Resolved]
  - Fluid retention [Unknown]
  - Mobility decreased [Not Recovered/Not Resolved]
  - Rash [Unknown]
  - Ear pain [Not Recovered/Not Resolved]
  - Dizziness [Not Recovered/Not Resolved]
  - Therapeutic response decreased [Unknown]
  - Chest pain [Not Recovered/Not Resolved]
  - Sinusitis [Recovered/Resolved]
  - Haematochezia [Not Recovered/Not Resolved]
  - Vascular pain [Not Recovered/Not Resolved]
  - Joint range of motion decreased [Recovered/Resolved]
  - Peripheral swelling [Recovered/Resolved]
  - Decreased immune responsiveness [Recovered/Resolved]
  - Arthralgia [Not Recovered/Not Resolved]
  - Inflammation [Recovered/Resolved]
  - Anxiety [Not Recovered/Not Resolved]
  - Pyrexia [Recovered/Resolved]
  - Injection site erythema [Recovered/Resolved]
  - Injection site reaction [Recovered/Resolved]
  - Condition aggravated [Recovered/Resolved]
  - Pruritus [Recovered/Resolved]
  - Screaming [Not Recovered/Not Resolved]
  - Hypokinesia [Not Recovered/Not Resolved]
  - Drug ineffective [Not Recovered/Not Resolved]
  - Influenza [Recovered/Resolved]
  - Anogenital warts [Not Recovered/Not Resolved]
  - Pneumonia [Recovered/Resolved]
  - Mass [Recovered/Resolved]
  - Drug interaction [Not Recovered/Not Resolved]
  - Palpitations [Not Recovered/Not Resolved]
  - Infection [Recovered/Resolved]
  - Gait inability [Unknown]
  - Discomfort [Not Recovered/Not Resolved]
  - Cough [Recovered/Resolved]
  - Emotional distress [Unknown]
  - Condition aggravated [Unknown]
  - Depressed mood [Not Recovered/Not Resolved]
  - Gait disturbance [Not Recovered/Not Resolved]
  - Chest pain [Recovered/Resolved]
  - Swelling [Unknown]
  - Muscle spasms [Not Recovered/Not Resolved]

NARRATIVE: CASE EVENT DATE: 2015
